FAERS Safety Report 8200248-4 (Version None)
Quarter: 2012Q1

REPORT INFORMATION
  Report Type: 
  Country: None (occurrence: None)
  Receive Date: 20120306
  Receipt Date: 20120221
  Transmission Date: 20120608
  Serious: Yes (Hospitalization)
  Sender: FDA-Public Use
  Company Number: 2012MA002452

PATIENT
  Age: 63 Year
  Sex: Female

DRUGS (6)
  1. DOCUSATE SODIUM [Concomitant]
  2. ALENDRONIC ACID (ALENDRONIC ACID) [Suspect]
     Indication: OSTEOPOROSIS
     Dosage: 70 MG;QD
  3. PAROVEN [Concomitant]
  4. MOVIPREP [Concomitant]
  5. IBUPROFEN [Suspect]
     Dosage: 400 MG;TID;PO
     Route: 048
  6. ADVAL-D3 [Concomitant]

REACTIONS (3)
  - RECTAL HAEMORRHAGE [None]
  - OESOPHAGEAL ULCER [None]
  - DUODENAL ULCER HAEMORRHAGE [None]
